FAERS Safety Report 10721278 (Version 1)
Quarter: 2015Q1

REPORT INFORMATION
  Report Type: Spontaneous
  Country: US (occurrence: US)
  Receive Date: 20150119
  Receipt Date: 20150119
  Transmission Date: 20150721
  Serious: No
  Sender: FDA-Public Use
  Company Number: US-ASTRAZENECA-2015SE02817

PATIENT
  Sex: Male
  Weight: 149.7 kg

DRUGS (2)
  1. SYMBICORT [Suspect]
     Active Substance: BUDESONIDE\FORMOTEROL FUMARATE DIHYDRATE
     Indication: ASTHMA
     Dosage: 2 PUFFS,TWO TIMES A DAY
     Route: 055
     Dates: start: 20140106, end: 201404
  2. DULERA [Concomitant]
     Active Substance: FORMOTEROL FUMARATE DIHYDRATE\MOMETASONE FUROATE
     Dosage: 200MG,2 PUFFS A DAY
     Route: 055

REACTIONS (5)
  - Nasal congestion [Unknown]
  - Productive cough [Unknown]
  - Pulmonary congestion [Unknown]
  - Wheezing [Unknown]
  - Lung infection [Unknown]

NARRATIVE: CASE EVENT DATE: 201404
